FAERS Safety Report 6724638-1 (Version None)
Quarter: 2010Q2

REPORT INFORMATION
  Report Type: 
  Country: None (occurrence: None)
  Receive Date: 20100513
  Receipt Date: 20100429
  Transmission Date: 20101027
  Serious: Yes (Hospitalization)
  Sender: FDA-Public Use
  Company Number: US-ELI_LILLY_AND_COMPANY-US200906005741

PATIENT
  Sex: Female

DRUGS (12)
  1. FORTEO [Suspect]
     Indication: OSTEOPOROSIS
     Dosage: 20 UG, DAILY (1/D)
     Dates: start: 20090619
  2. FENTANYL CITRATE [Concomitant]
     Dosage: 50 G, 2/W
  3. CALCIUM CARBONATE [Concomitant]
  4. TEMAZEPAM [Concomitant]
     Dosage: 10 MG, UNK
  5. COUMADIN [Concomitant]
     Dosage: 4 MG, UNK
  6. FUROSEMIDE [Concomitant]
     Dosage: 40 MG, UNK
  7. METOLAZONE [Concomitant]
     Dosage: 5 MG, QOD
  8. SIMVASTATIN [Concomitant]
     Dosage: 40 MG, UNK
  9. KLOR-CON [Concomitant]
     Dosage: 10 MEQ, UNK
  10. OMEPRAZOLE [Concomitant]
     Dosage: 20 MG, UNK
  11. METOPROLOL TARTRATE [Concomitant]
     Dosage: 25 MG, 2/D
  12. RANOPRIL [Concomitant]
     Dosage: 2.5 MG, UNK

REACTIONS (7)
  - BACK PAIN [None]
  - DYSSTASIA [None]
  - GOUT [None]
  - HOSPITALISATION [None]
  - MEMORY IMPAIRMENT [None]
  - NEPHROLITHIASIS [None]
  - PAIN [None]
